FAERS Safety Report 17551361 (Version 1)
Quarter: 2020Q1

REPORT INFORMATION
  Report Type: Spontaneous
  Country: US (occurrence: US)
  Receive Date: 20200317
  Receipt Date: 20200317
  Transmission Date: 20200409
  Serious: No
  Sender: FDA-Public Use
  Company Number: US-UPSHER-SMITH LABORATORIES, LLC-2019USL00493

PATIENT
  Age: 25 Year
  Sex: Female

DRUGS (2)
  1. PREVALITE [Suspect]
     Active Substance: CHOLESTYRAMINE
     Dosage: 1 PACKET, 2X/DAY
     Route: 048
     Dates: start: 20190531
  2. PREVALITE [Suspect]
     Active Substance: CHOLESTYRAMINE
     Dosage: 1 PACKET, 2X/DAY
     Route: 048
     Dates: end: 20190530

REACTIONS (2)
  - Choking [Recovered/Resolved]
  - Retching [Recovered/Resolved]

NARRATIVE: CASE EVENT DATE: 2019
